FAERS Safety Report 8941829 (Version 2)
Quarter: 2013Q1

REPORT INFORMATION
  Report Type: Spontaneous
  Country: US (occurrence: US)
  Receive Date: 20121203
  Receipt Date: 20130213
  Transmission Date: 20140127
  Serious: Yes (Other)
  Sender: FDA-Public Use
  Company Number: US-GILEAD-2012-0065371

PATIENT
  Sex: Female

DRUGS (12)
  1. LETAIRIS [Suspect]
     Indication: PULMONARY HYPERTENSION
     Dosage: 5 MG, UNK
     Route: 048
     Dates: start: 20121029, end: 20121101
  2. LETAIRIS [Suspect]
     Dosage: 2.5 UNK, UNK
     Route: 048
     Dates: start: 20121102, end: 20121124
  3. LETAIRIS [Suspect]
     Dosage: 2.5 MG, BID
     Route: 048
     Dates: start: 20121125, end: 20121127
  4. LETAIRIS [Suspect]
     Dosage: 5 MG, QD
     Route: 048
     Dates: start: 20121128
  5. HYDROCHLOROTHIAZIDE W/LOSARTAN [Concomitant]
  6. ADCIRCA [Concomitant]
  7. ASPIRIN [Concomitant]
  8. FUROSEMIDE [Concomitant]
  9. DIGOXIN [Concomitant]
  10. METFORMIN [Concomitant]
  11. SIMVASTATIN [Concomitant]
  12. ATROVENT [Concomitant]

REACTIONS (8)
  - Hypotension [Recovered/Resolved]
  - Extrasystoles [Recovered/Resolved]
  - Sensation of heaviness [Recovered/Resolved]
  - Dyspnoea [Unknown]
  - Oedema peripheral [Unknown]
  - Weight increased [Unknown]
  - Palpitations [Recovered/Resolved]
  - Fatigue [Recovered/Resolved]
